FAERS Safety Report 4280456-8 (Version None)
Quarter: 2004Q1

REPORT INFORMATION
  Report Type: 
  Country: None (occurrence: None)
  Receive Date: 20040128
  Receipt Date: 20040128
  Transmission Date: 20041129
  Serious: Yes (Hospitalization)
  Sender: FDA-Public Use
  Company Number: None

PATIENT
  Age: 74 Year
  Sex: Male
  Weight: 77.5651 kg

DRUGS (2)
  1. EPOGEN [Suspect]
     Indication: ANAEMIA
     Dosage: 40,000 IU SQ /WEEK
     Dates: start: 20010312, end: 20010910
  2. WARFARIN SODIUM [Concomitant]

REACTIONS (2)
  - INTERNATIONAL NORMALISED RATIO INCREASED [None]
  - MUCOSAL INFLAMMATION [None]
